FAERS Safety Report 9458168 (Version 2)
Quarter: 2013Q3

REPORT INFORMATION
  Report Type: Spontaneous
  Country: FR (occurrence: FR)
  Receive Date: 20130814
  Receipt Date: 20130822
  Transmission Date: 20140515
  Serious: Yes (Other)
  Sender: FDA-Public Use
  Company Number: FR-ASTRAZENECA-2013SE62209

PATIENT
  Age: 723 Month
  Sex: Male

DRUGS (5)
  1. CRESTOR [Suspect]
     Indication: PROPHYLAXIS
     Route: 048
     Dates: start: 2004
  2. CRESTOR [Suspect]
     Indication: HYPERCHOLESTEROLAEMIA
     Route: 048
     Dates: start: 2004
  3. PLAVIX [Concomitant]
     Indication: HYPERTENSION
  4. DETENSIEL [Concomitant]
     Indication: HYPERTENSION
  5. VASTEN [Concomitant]
     Indication: HYPERCHOLESTEROLAEMIA
     Dates: end: 2004

REACTIONS (5)
  - Hypertension [Recovered/Resolved]
  - Sleep apnoea syndrome [Recovered/Resolved]
  - Median nerve injury [Not Recovered/Not Resolved]
  - Paraesthesia [Not Recovered/Not Resolved]
  - Low density lipoprotein increased [Not Recovered/Not Resolved]
